FAERS Safety Report 10164962 (Version 1)
Quarter: 2014Q2

REPORT INFORMATION
  Report Type: Spontaneous
  Country: US (occurrence: US)
  Receive Date: 20140510
  Receipt Date: 20140510
  Transmission Date: 20141212
  Serious: No
  Sender: FDA-Public Use
  Company Number: US-BRISTOL-MYERS SQUIBB COMPANY-19618867

PATIENT
  Age: 51 Year
  Sex: Male
  Weight: 85.26 kg

DRUGS (4)
  1. BYETTA PEN DISPOSABLE [Suspect]
     Indication: TYPE 2 DIABETES MELLITUS
     Dosage: AUG13-SEP13;5MCG?SEP13-ONG:10MCG
     Dates: start: 201308
  2. AMLODIPINE [Concomitant]
  3. CRESTOR [Concomitant]
  4. HYDROCHLOROTHIAZIDE [Concomitant]

REACTIONS (1)
  - Blood glucose increased [Unknown]
